FAERS Safety Report 13181742 (Version 1)
Quarter: 2017Q1

REPORT INFORMATION
  Report Type: Other
  Country: IT (occurrence: IT)
  Receive Date: 20170202
  Receipt Date: 20170202
  Transmission Date: 20170428
  Serious: No
  Sender: FDA-Public Use
  Company Number: IT-MISSION PHARMACAL COMPANY-1062671

PATIENT
  Age: 81 Year
  Sex: Female

DRUGS (3)
  1. XARENEL (CHOLECALCIFEROL) [Concomitant]
     Route: 065
  2. BINOSTO [Suspect]
     Active Substance: ALENDRONATE SODIUM
     Indication: OSTEOPOROSIS
     Route: 048
     Dates: start: 19970301, end: 20151101
  3. GLEEVEC [Concomitant]
     Active Substance: IMATINIB MESYLATE
     Route: 048
     Dates: start: 20160101, end: 20160901

REACTIONS (2)
  - Osteonecrosis [Unknown]
  - Osteitis [Unknown]
